FAERS Safety Report 5432222-5 (Version None)
Quarter: 2007Q3

REPORT INFORMATION
  Report Type: 
  Country: None (occurrence: None)
  Receive Date: 20070830
  Receipt Date: 20070824
  Transmission Date: 20080115
  Serious: Yes (Other)
  Sender: FDA-Public Use
  Company Number: AU-GENENTECH-246673

PATIENT

DRUGS (1)
  1. RITUXAN [Suspect]
     Indication: SCLERODERMA
     Dosage: 375 MG/M2, UNK

REACTIONS (1)
  - FEBRILE NEUTROPENIA [None]
